FAERS Safety Report 25575145 (Version 1)
Quarter: 2025Q3

REPORT INFORMATION
  Report Type: Report from Study
  Country: CA (occurrence: CA)
  Receive Date: 20250718
  Receipt Date: 20250718
  Transmission Date: 20251021
  Serious: Yes (Death)
  Sender: CHEPLAPHARM
  Company Number: CA-CHEPLA-2025008709

PATIENT
  Age: 30 Week

DRUGS (10)
  1. OLANZAPINE [Suspect]
     Active Substance: OLANZAPINE
     Indication: Mental disorder
     Route: 064
  2. QUETIAPINE [Suspect]
     Active Substance: QUETIAPINE
     Indication: Mental disorder
     Route: 064
  3. SERTRALINE [Suspect]
     Active Substance: SERTRALINE HYDROCHLORIDE
     Indication: Mental disorder
     Route: 064
  4. FENTANYL [Suspect]
     Active Substance: FENTANYL
     Route: 064
  5. METHAMPHETAMINE [Suspect]
     Active Substance: METHAMPHETAMINE
     Route: 064
  6. AMPHETAMINE [Suspect]
     Active Substance: AMPHETAMINE
     Route: 064
  7. COCAINE [Suspect]
     Active Substance: COCAINE
     Route: 064
  8. BENZOYLECGONINE [Suspect]
     Active Substance: BENZOYLECGONINE
     Route: 064
  9. HERBALS\TETRAHYDROCANNABINOL UNSPECIFIED [Suspect]
     Active Substance: HERBALS\TETRAHYDROCANNABINOL UNSPECIFIED
     Route: 064
  10. CANNABINOL [Suspect]
     Active Substance: CANNABINOL
     Route: 064

REACTIONS (2)
  - Foetal death [Fatal]
  - Foetal exposure during pregnancy [Unknown]
